FAERS Safety Report 9870227 (Version 4)
Quarter: 2014Q3

REPORT INFORMATION
  Report Type: Spontaneous
  Country: US (occurrence: US)
  Receive Date: 20140205
  Receipt Date: 20140710
  Transmission Date: 20150326
  Serious: Yes (Life-Threatening, Hospitalization)
  Sender: FDA-Public Use
  Company Number: US-ACTELION-A-US2014-94542

PATIENT
  Age: 49 Year
  Sex: Male

DRUGS (4)
  1. COUMADIN [Concomitant]
     Active Substance: WARFARIN SODIUM
  2. OPSUMIT [Suspect]
     Active Substance: MACITENTAN
     Dosage: 10 MG, QD
     Route: 048
  3. REVATIO [Concomitant]
     Active Substance: SILDENAFIL CITRATE
  4. OPSUMIT [Suspect]
     Active Substance: MACITENTAN
     Indication: PULMONARY ARTERIAL HYPERTENSION
     Dosage: 10 MG, QD
     Route: 048
     Dates: start: 20131227, end: 20140430

REACTIONS (4)
  - Thrombosis in device [Recovered/Resolved]
  - Ventricular assist device insertion [Recovered/Resolved]
  - Cardiac failure congestive [Recovering/Resolving]
  - Medical device change [Recovered/Resolved]

NARRATIVE: CASE EVENT DATE: 20140106
